FAERS Safety Report 5008202-0 (Version None)
Quarter: 2006Q2

REPORT INFORMATION
  Report Type: 
  Country: None (occurrence: None)
  Receive Date: 20060522
  Receipt Date: 20060515
  Transmission Date: 20061013
  Serious: Yes (Hospitalization)
  Sender: FDA-Public Use
  Company Number: US-MERCK-0605USA02706

PATIENT
  Age: 57 Year
  Sex: Female

DRUGS (4)
  1. VYTORIN [Suspect]
     Indication: BLOOD CHOLESTEROL INCREASED
     Route: 048
     Dates: start: 20060302, end: 20060101
  2. ANTIMICROBIAL (UNSPECIFIED) [Concomitant]
     Route: 065
  3. CORTICOSTEROIDS (UNSPECIFIED) [Concomitant]
     Route: 065
  4. AVALIDE [Concomitant]
     Route: 065

REACTIONS (1)
  - BLISTER [None]
